FAERS Safety Report 4479753-2 (Version None)
Quarter: 2004Q3

REPORT INFORMATION
  Report Type: 
  Country: None (occurrence: None)
  Receive Date: 20040923
  Receipt Date: 20040528
  Transmission Date: 20050211
  Serious: No
  Sender: FDA-Public Use
  Company Number: USA040361271

PATIENT
  Sex: Female

DRUGS (5)
  1. FORTEO [Suspect]
     Indication: OSTEOPOROSIS
     Dosage: 20 U DAY
     Dates: start: 20040123
  2. METHOTREXATE [Concomitant]
  3. BEXTRA [Concomitant]
  4. PENICILLIN [Concomitant]
  5. FOLIC ACID [Concomitant]

REACTIONS (5)
  - BALANCE DISORDER [None]
  - CERUMEN IMPACTION [None]
  - CERUMEN REMOVAL [None]
  - INFLAMMATION [None]
  - NAUSEA [None]
